FAERS Safety Report 11259046 (Version 1)
Quarter: 2015Q3

REPORT INFORMATION
  Report Type: Spontaneous
  Country: US (occurrence: US)
  Receive Date: 20150710
  Receipt Date: 20150710
  Transmission Date: 20151125
  Serious: No
  Sender: FDA-Public Use
  Company Number: US-BAYER-2015-375362

PATIENT
  Age: 48 Year
  Sex: Male
  Weight: 84 kg

DRUGS (1)
  1. ALEVE [Suspect]
     Active Substance: NAPROXEN SODIUM
     Indication: TOOTHACHE
     Dosage: 2 DF, PRN
     Route: 048
     Dates: end: 20150708

REACTIONS (1)
  - Drug ineffective [Unknown]

NARRATIVE: CASE EVENT DATE: 20150708
